FAERS Safety Report 7921312-0 (Version None)
Quarter: 2011Q4

REPORT INFORMATION
  Report Type: 
  Country: None (occurrence: None)
  Receive Date: 20111117
  Receipt Date: 20111107
  Transmission Date: 20120403
  Serious: Yes (Life-Threatening)
  Sender: FDA-Public Use
  Company Number: US-BAYER-2011-045402

PATIENT
  Age: 21 Year
  Sex: Female
  Weight: 49.887 kg

DRUGS (7)
  1. YAZ [Suspect]
     Indication: PREMENSTRUAL SYNDROME
  2. YAZ [Suspect]
     Indication: CONTRACEPTION
     Dosage: UNK
     Route: 048
     Dates: start: 20090401, end: 20090801
  3. SILDEC [Concomitant]
     Indication: COUGH
     Dosage: UNK UNK, QD
     Route: 048
     Dates: start: 20090701, end: 20090801
  4. CIPRO [Concomitant]
     Dosage: 500 MG, UNK
     Route: 048
     Dates: start: 20090508
  5. NITROFURANTOIN [Concomitant]
     Dosage: 100 MG, UNK
     Route: 048
     Dates: start: 20090616
  6. PHENAZOPYRIDINE HCL TAB [Concomitant]
     Dosage: 200 MG, QD
     Dates: start: 20090508
  7. AZITHROMYCIN [Concomitant]
     Dosage: UNK UNK, QD
     Route: 048
     Dates: start: 20090701, end: 20090801

REACTIONS (5)
  - ANHEDONIA [None]
  - PAIN [None]
  - ANXIETY [None]
  - FEAR [None]
  - DEEP VEIN THROMBOSIS [None]
